FAERS Safety Report 16446256 (Version 2)
Quarter: 2019Q3

REPORT INFORMATION
  Report Type: Spontaneous
  Country: MX (occurrence: MX)
  Receive Date: 20190618
  Receipt Date: 20190726
  Transmission Date: 20191004
  Serious: Yes (Other)
  Sender: FDA-Public Use
  Company Number: MX-ASTRAZENECA-2019SE87712

PATIENT
  Age: 1021 Day
  Sex: Female
  Weight: 13.8 kg

DRUGS (2)
  1. NEXIUM [Suspect]
     Active Substance: ESOMEPRAZOLE MAGNESIUM
     Indication: GASTROOESOPHAGEAL REFLUX DISEASE
     Dosage: 2.5 MG, 2 SACHETS IN THE MORNING BEFORE BREAKFAST
     Route: 048
     Dates: start: 201901, end: 20190715
  2. FLAGENASE [Concomitant]
     Indication: AMOEBIASIS
     Route: 048
     Dates: start: 20190603, end: 20190604

REACTIONS (3)
  - Drug interaction [Unknown]
  - Gastrointestinal disorder [Recovered/Resolved]
  - Amoebiasis [Recovered/Resolved]

NARRATIVE: CASE EVENT DATE: 20190603
